FAERS Safety Report 23957701 (Version 2)
Quarter: 2024Q3

REPORT INFORMATION
  Report Type: Spontaneous
  Country: US (occurrence: US)
  Receive Date: 20240610
  Receipt Date: 20240807
  Transmission Date: 20241017
  Serious: Yes (Disabling, Other)
  Sender: AMGEN
  Company Number: US-AMGEN-USASP2024110028

PATIENT
  Age: 68 Year
  Sex: Male

DRUGS (13)
  1. TEPEZZA [Suspect]
     Active Substance: TEPROTUMUMAB-TRBW
     Indication: Endocrine ophthalmopathy
     Dosage: 1000 MILLIGRAM, Q3WK (TOTAL RECEIVED DOSE: 1040 MILLIGRAM)
     Route: 042
     Dates: start: 20220608
  2. TEPEZZA [Suspect]
     Active Substance: TEPROTUMUMAB-TRBW
     Indication: Graves^ disease
     Dosage: 2000 MILLIGRAM, Q3WK (TOTAL RECEIVED DOSE: 2050 MILLIGRAM)
     Route: 042
     Dates: start: 20220629
  3. TEPEZZA [Suspect]
     Active Substance: TEPROTUMUMAB-TRBW
     Dosage: 2000 MILLIGRAM, Q3WK
     Route: 042
     Dates: start: 20220720
  4. TEPEZZA [Suspect]
     Active Substance: TEPROTUMUMAB-TRBW
     Dosage: 2000 MILLIGRAM, Q3WK (TOTAL RECEIVED DOSE: 2020 MILLIGRAM)
     Route: 042
     Dates: start: 20220810
  5. TEPEZZA [Suspect]
     Active Substance: TEPROTUMUMAB-TRBW
     Dosage: 2000 UNK, Q3WK (TOTAL RECEIVED DOSE: 2100 MILLIGRAM)
     Route: 042
     Dates: start: 20220831
  6. TEPEZZA [Suspect]
     Active Substance: TEPROTUMUMAB-TRBW
     Dosage: 2000 MILLIGRAM, Q3WK (TOTAL RECEIVED DOSE: 2080 MILLIGRAM)
     Route: 042
     Dates: start: 20220921
  7. TEPEZZA [Suspect]
     Active Substance: TEPROTUMUMAB-TRBW
     Dosage: 2000 MILLIGRAM, Q3WK (TOTAL RECEIVED DOSE: 2080 MILLIGRAM)
     Route: 042
     Dates: start: 20221012
  8. TEPEZZA [Suspect]
     Active Substance: TEPROTUMUMAB-TRBW
     Dosage: 2000 MILLIGRAM, Q3WK (TOTAL RECEIVED DOSE: 2060 MILLIGRAM)
     Route: 042
     Dates: start: 20221102
  9. PREDNISONE [Suspect]
     Active Substance: PREDNISONE
     Indication: Product used for unknown indication
     Dosage: 20 MILLIGRAM, TID (FOR 2 WEEKS)
     Route: 048
     Dates: start: 20220504
  10. PREDNISONE [Suspect]
     Active Substance: PREDNISONE
     Dosage: 20 MILLIGRAM, QD
     Route: 048
     Dates: start: 20220504
  11. PREDNISONE [Suspect]
     Active Substance: PREDNISONE
     Dosage: 20 MILLIGRAM, QD
     Route: 048
     Dates: start: 20220602
  12. LEVOTHYROXINE [Concomitant]
     Active Substance: LEVOTHYROXINE\LEVOTHYROXINE SODIUM
  13. METHIMAZOLE [Concomitant]
     Active Substance: METHIMAZOLE

REACTIONS (15)
  - Deafness permanent [Not Recovered/Not Resolved]
  - Pain [Unknown]
  - Tinnitus [Not Recovered/Not Resolved]
  - Impaired quality of life [Unknown]
  - Emotional distress [Unknown]
  - Anxiety [Unknown]
  - Concomitant disease aggravated [Unknown]
  - Discomfort [Unknown]
  - Product communication issue [Unknown]
  - Dizziness [Recovered/Resolved]
  - Tendonitis [Unknown]
  - Skin wrinkling [Unknown]
  - Skin atrophy [Unknown]
  - Dry skin [Unknown]
  - Fatigue [Not Recovered/Not Resolved]

NARRATIVE: CASE EVENT DATE: 20230601
